FAERS Safety Report 10151865 (Version 1)
Quarter: 2014Q2

REPORT INFORMATION
  Report Type: Spontaneous
  Country: US (occurrence: None)
  Receive Date: 20140501
  Receipt Date: 20140501
  Transmission Date: 20141212
  Serious: Yes (Other)
  Sender: FDA-Public Use
  Company Number: 2315421

PATIENT
  Age: 48 Year
  Sex: Female

DRUGS (2)
  1. METHOTREXATE [Suspect]
     Indication: PRODUCT USED FOR UNKNOWN INDICATION
     Dosage: 20 MG, 1 WEEK, UNKNOWN
  2. PLAQUENIL [Concomitant]

REACTIONS (12)
  - Cerebrovascular accident [None]
  - Thrombocytopenia [None]
  - Cerebral infarction [None]
  - Carotid artery stenosis [None]
  - Leukocytosis [None]
  - Immune thrombocytopenic purpura [None]
  - Cardiac arrest [None]
  - Electrocardiogram ST segment elevation [None]
  - Arteriospasm coronary [None]
  - Brain injury [None]
  - Zygomycosis [None]
  - Embolism [None]
